FAERS Safety Report 5189902-9 (Version None)
Quarter: 2006Q4

REPORT INFORMATION
  Report Type: 
  Country: None (occurrence: None)
  Receive Date: 20061218
  Receipt Date: 20061211
  Transmission Date: 20070319
  Serious: Yes (Life-Threatening, Hospitalization)
  Sender: FDA-Public Use
  Company Number: 310019M06FRA

PATIENT
  Age: 28 Year
  Sex: Female
  Weight: 55 kg

DRUGS (3)
  1. GONAL-F [Suspect]
     Indication: IN VITRO FERTILISATION
     Dosage: SEE IMAGE
     Route: 058
     Dates: start: 20000614, end: 20000618
  2. GONAL-F [Suspect]
     Indication: IN VITRO FERTILISATION
     Dosage: SEE IMAGE
     Route: 058
     Dates: start: 20000616, end: 20000622
  3. DECAPEPTYL-RETARD (GONADORELIN) [Suspect]
     Dosage: 1.5 MG, ONCE, INTRAMUSCULAR
     Route: 030
     Dates: start: 20000601

REACTIONS (6)
  - HAEMATOCRIT ABNORMAL [None]
  - HYPOVOLAEMIA [None]
  - OVARIAN HYPERSTIMULATION SYNDROME [None]
  - PLEURAL EFFUSION [None]
  - PROTEIN S DECREASED [None]
  - TACHYCARDIA [None]
